FAERS Safety Report 13426054 (Version 1)
Quarter: 2017Q2

REPORT INFORMATION
  Report Type: Spontaneous
  Country: US (occurrence: US)
  Receive Date: 20170410
  Receipt Date: 20170410
  Transmission Date: 20170830
  Serious: Yes (Life-Threatening, Hospitalization, Disabling, Other)
  Sender: FDA-Public Use
  Company Number: None

PATIENT
  Age: 8 Year
  Sex: Male
  Weight: 43.65 kg

DRUGS (2)
  1. TYLENOL MULTI SYSTEM [Concomitant]
  2. METHYLPHENIDATE. [Suspect]
     Active Substance: METHYLPHENIDATE
     Indication: ATTENTION DEFICIT/HYPERACTIVITY DISORDER
     Dosage: ?          QUANTITY:1 TABLET(S);?
     Route: 048
     Dates: start: 20120219, end: 20140305

REACTIONS (3)
  - Bone marrow failure [None]
  - Erection increased [None]
  - Penis disorder [None]

NARRATIVE: CASE EVENT DATE: 20130328
